APPROVED DRUG PRODUCT: CLOTRIMAZOLE
Active Ingredient: CLOTRIMAZOLE
Strength: 1%
Dosage Form/Route: CREAM;VAGINAL
Application: A074165 | Product #001
Applicant: P AND L DEVELOPMENT LLC
Approved: Jul 16, 1993 | RLD: No | RS: Yes | Type: OTC